FAERS Safety Report 6155587-8 (Version None)
Quarter: 2009Q2

REPORT INFORMATION
  Report Type: 
  Country: None (occurrence: None)
  Receive Date: 20090410
  Receipt Date: 20090410
  Transmission Date: 20091009
  Serious: No
  Sender: FDA-Public Use
  Company Number: None

PATIENT
  Sex: Female
  Weight: 52.1637 kg

DRUGS (1)
  1. CLARITHROMYCIN [Suspect]
     Indication: SINUSITIS
     Dates: start: 20090402, end: 20090409

REACTIONS (9)
  - ABDOMINAL PAIN UPPER [None]
  - CONFUSIONAL STATE [None]
  - CRYING [None]
  - DEPRESSION [None]
  - DYSPEPSIA [None]
  - NIGHTMARE [None]
  - PANIC ATTACK [None]
  - URINE OUTPUT DECREASED [None]
  - WEIGHT DECREASED [None]
